FAERS Safety Report 10362218 (Version 3)
Quarter: 2015Q2

REPORT INFORMATION
  Report Type: Spontaneous
  Country: RO (occurrence: RO)
  Receive Date: 20140805
  Receipt Date: 20150506
  Transmission Date: 20150821
  Serious: Yes (Hospitalization, Disabling, Other)
  Sender: FDA-Public Use
  Company Number: RO-MERCK-1408ROM000077

PATIENT
  Age: 31 Year
  Sex: Female
  Weight: 73 kg

DRUGS (3)
  1. REBETOL [Suspect]
     Active Substance: RIBAVIRIN
     Dosage: TOTAL DAILY DOSE: 1000MG, DAY
     Route: 048
     Dates: start: 20140612, end: 20140718
  2. PEGINTRON [Suspect]
     Active Substance: PEGINTERFERON ALFA-2B
     Indication: CHRONIC HEPATITIS C
     Dosage: UNK, WEEK
     Route: 058
     Dates: start: 20140612, end: 20140708
  3. PEGINTRON [Suspect]
     Active Substance: PEGINTERFERON ALFA-2B
     Dosage: 50 MICROGRAM, WEEK
     Route: 058
     Dates: start: 20140710, end: 20140718

REACTIONS (24)
  - Metrorrhagia [Recovered/Resolved]
  - Prothrombin time prolonged [Unknown]
  - Thrombocytopenia [Recovered/Resolved]
  - Transfusion [Not Recovered/Not Resolved]
  - Pallor [Unknown]
  - Erythema [Unknown]
  - Blood iron increased [Unknown]
  - Blood glucose increased [Unknown]
  - Hyperhidrosis [Unknown]
  - Vessel puncture site bruise [Unknown]
  - Scleroderma [Unknown]
  - Enterococcal infection [Unknown]
  - Bilirubin conjugated increased [Unknown]
  - White blood cell count increased [Unknown]
  - Lymphocyte count decreased [Unknown]
  - Pruritus [Unknown]
  - Reticulocyte count decreased [Unknown]
  - Monocyte count increased [Unknown]
  - Autoimmune disorder [Not Recovered/Not Resolved]
  - Productive cough [Unknown]
  - Odynophagia [Unknown]
  - Central obesity [Unknown]
  - International normalised ratio decreased [Unknown]
  - Transferrin saturation [Unknown]

NARRATIVE: CASE EVENT DATE: 2014
